FAERS Safety Report 18954273 (Version 1)
Quarter: 2021Q1

REPORT INFORMATION
  Report Type: Spontaneous
  Country: US (occurrence: US)
  Receive Date: 20210301
  Receipt Date: 20210301
  Transmission Date: 20210420
  Serious: No
  Sender: FDA-Public Use
  Company Number: US-EDENBRIDGE PHARMACEUTICALS, LLC-US-2020EDE000054

PATIENT
  Sex: Male

DRUGS (1)
  1. ALBENDAZOLE. [Suspect]
     Active Substance: ALBENDAZOLE
     Indication: NEMATODIASIS
     Dosage: 1200 MG (SIX TABLETS)

REACTIONS (2)
  - Incorrect dose administered [Unknown]
  - Off label use [Unknown]
